FAERS Safety Report 4466135-2 (Version None)
Quarter: 2004Q4

REPORT INFORMATION
  Report Type: 
  Country: None (occurrence: None)
  Receive Date: 20041005
  Receipt Date: 20040929
  Transmission Date: 20050328
  Serious: Yes (Disabling, Other)
  Sender: FDA-Public Use
  Company Number: FR-JNJFOC-20040403203

PATIENT
  Sex: Female
  Weight: 59 kg

DRUGS (2)
  1. CAELYX [Suspect]
     Route: 042
  2. ZOMETA [Concomitant]
     Route: 042

REACTIONS (4)
  - DRUG TOXICITY [None]
  - EPIDERMODYSPLASIA VERRUCIFORMIS [None]
  - PALMAR-PLANTAR ERYTHRODYSAESTHESIA SYNDROME [None]
  - RASH PAPULAR [None]
